FAERS Safety Report 14777633 (Version 2)
Quarter: 2018Q2

REPORT INFORMATION
  Report Type: Spontaneous
  Country: US (occurrence: US)
  Receive Date: 20180419
  Receipt Date: 20180423
  Transmission Date: 20180711
  Serious: No
  Sender: FDA-Public Use
  Company Number: US-PFIZER INC-2018160685

PATIENT
  Sex: Female

DRUGS (3)
  1. BACTRIM [Interacting]
     Active Substance: SULFAMETHOXAZOLE\TRIMETHOPRIM
     Dosage: DOUBLE STRENGTH, TWICE A DAY FOR 18 MONTHS
  2. DEPO-PROVERA [Suspect]
     Active Substance: MEDROXYPROGESTERONE ACETATE
     Indication: PROGESTERONE DECREASED
     Dosage: UNK
     Route: 030
  3. AMPHOTERICIN B. [Suspect]
     Active Substance: AMPHOTERICIN B
     Dosage: UNK

REACTIONS (2)
  - Product use in unapproved indication [Unknown]
  - Inhibitory drug interaction [Unknown]
